FAERS Safety Report 7208554-7 (Version None)
Quarter: 2011Q1

REPORT INFORMATION
  Report Type: 
  Country: None (occurrence: None)
  Receive Date: 20110104
  Receipt Date: 20101223
  Transmission Date: 20110831
  Serious: Yes (Death)
  Sender: FDA-Public Use
  Company Number: US-JNJFOC-20090902539

PATIENT
  Sex: Female
  Weight: 63.5 kg

DRUGS (10)
  1. NORDIAZEPAM [Concomitant]
     Route: 065
  2. HYDROCODONE [Concomitant]
     Route: 065
  3. CITALOPRAM [Concomitant]
     Route: 065
  4. FENTANYL-100 [Suspect]
     Indication: PAIN
     Route: 062
  5. DIAZEPAM [Concomitant]
     Route: 065
  6. ECGONINE [Concomitant]
     Route: 065
  7. AMITRIPTYLINE [Concomitant]
     Route: 065
  8. BENZOYLECGONINE [Concomitant]
     Route: 065
  9. NORTRIPTYLINE [Concomitant]
     Route: 065
  10. ALBUTEROL [Concomitant]

REACTIONS (5)
  - DRUG INEFFECTIVE [None]
  - DEVICE MALFUNCTION [None]
  - TREATMENT NONCOMPLIANCE [None]
  - TOXICITY TO VARIOUS AGENTS [None]
  - PRODUCT QUALITY ISSUE [None]
